FAERS Safety Report 18081900 (Version 3)
Quarter: 2020Q3

REPORT INFORMATION
  Report Type: Report from Study
  Country: None (occurrence: US)
  Receive Date: 20200729
  Receipt Date: 20200908
  Transmission Date: 20201103
  Serious: Yes (Hospitalization, Other)
  Sender: FDA-Public Use
  Company Number: US-ABBVIE-20K-163-3498221-00

PATIENT
  Age: 72 Year
  Sex: Female

DRUGS (1)
  1. RINVOQ [Suspect]
     Active Substance: UPADACITINIB
     Indication: RHEUMATOID ARTHRITIS
     Dosage: BY MOUTH
     Route: 048
     Dates: start: 20200627, end: 20200727

REACTIONS (6)
  - Myocardial infarction [Unknown]
  - Urinary tract infection [Recovering/Resolving]
  - Arteriosclerosis [Unknown]
  - Coronary artery occlusion [Recovering/Resolving]
  - Feeling abnormal [Unknown]
  - Insomnia [Unknown]

NARRATIVE: CASE EVENT DATE: 202007
